FAERS Safety Report 25550305 (Version 1)
Quarter: 2025Q3

REPORT INFORMATION
  Report Type: Report from Study
  Country: US (occurrence: US)
  Receive Date: 20250714
  Receipt Date: 20250714
  Transmission Date: 20251021
  Serious: Yes (Other)
  Sender: ALEXION PHARMACEUTICALS
  Company Number: US-AstraZeneca-CH-00909188A

PATIENT
  Sex: Female
  Weight: 39.002 kg

DRUGS (12)
  1. SELUMETINIB [Suspect]
     Active Substance: SELUMETINIB
     Indication: Neurofibromatosis
     Dosage: 30 MILLIGRAM, BID
     Dates: start: 20240907, end: 20250709
  2. BACTRIM [Concomitant]
     Active Substance: SULFAMETHOXAZOLE\TRIMETHOPRIM
     Route: 065
  3. CALCIUM\CHOLECALCIFEROL [Concomitant]
     Active Substance: CALCIUM\CHOLECALCIFEROL
     Route: 065
  4. VITAMINS [Concomitant]
     Active Substance: VITAMINS
     Route: 065
  5. CLARITIN [Concomitant]
     Active Substance: LORATADINE
     Route: 065
  6. DESONIDE [Concomitant]
     Active Substance: DESONIDE
     Route: 065
  7. LUPRON [Concomitant]
     Active Substance: LEUPROLIDE ACETATE
     Route: 065
  8. MELATONIN [Concomitant]
     Active Substance: MELATONIN
     Route: 065
  9. MUPIROCIN [Concomitant]
     Active Substance: MUPIROCIN
     Route: 065
  10. ONDANSETRON [Concomitant]
     Active Substance: ONDANSETRON
     Route: 065
  11. Papaya enzymes [Concomitant]
     Route: 065
  12. TYLENOL [Concomitant]
     Active Substance: ACETAMINOPHEN
     Route: 065

REACTIONS (4)
  - Cardiac failure congestive [Not Recovered/Not Resolved]
  - Fatigue [Not Recovered/Not Resolved]
  - Oedema peripheral [Not Recovered/Not Resolved]
  - Ejection fraction decreased [Not Recovered/Not Resolved]
